FAERS Safety Report 5056926-1 (Version None)
Quarter: 2006Q2

REPORT INFORMATION
  Report Type: 
  Country: None (occurrence: None)
  Receive Date: 20060620
  Receipt Date: 20050418
  Transmission Date: 20061013
  Serious: Yes (Hospitalization)
  Sender: FDA-Public Use
  Company Number: MK200504-0279-1

PATIENT
  Sex: Female

DRUGS (1)
  1. OPTIRAY 320 [Suspect]
     Indication: COMPUTERISED TOMOGRAM
     Dosage: 125 ML,ONE TIME, IV
     Route: 042
     Dates: start: 20050414, end: 20050414

REACTIONS (1)
  - HYPOTENSION [None]
